FAERS Safety Report 5034936-8 (Version None)
Quarter: 2006Q2

REPORT INFORMATION
  Report Type: 
  Country: None (occurrence: None)
  Receive Date: 20060627
  Receipt Date: 20060616
  Transmission Date: 20061013
  Serious: Yes (Other)
  Sender: FDA-Public Use
  Company Number: US-JNJFOC-20060603739

PATIENT
  Sex: Female

DRUGS (11)
  1. REMICADE [Suspect]
     Route: 042
  2. REMICADE [Suspect]
     Route: 042
  3. REMICADE [Suspect]
     Indication: RHEUMATOID ARTHRITIS
     Route: 042
  4. ASPIRIN [Concomitant]
  5. FOLIC ACID [Concomitant]
  6. METHOTREXATE [Concomitant]
  7. M.V.I. [Concomitant]
  8. PRAVACHOL [Concomitant]
  9. CLIMARA [Concomitant]
  10. PREDNISONE TAB [Concomitant]
  11. AVAPRO [Concomitant]

REACTIONS (9)
  - BACK PAIN [None]
  - CHEST PAIN [None]
  - HEADACHE [None]
  - INFUSION RELATED REACTION [None]
  - MALAISE [None]
  - PARAESTHESIA ORAL [None]
  - PYREXIA [None]
  - THROAT TIGHTNESS [None]
  - URTICARIA [None]
